FAERS Safety Report 5284148-8 (Version None)
Quarter: 2007Q2

REPORT INFORMATION
  Report Type: 
  Country: None (occurrence: None)
  Receive Date: 20070403
  Receipt Date: 20070323
  Transmission Date: 20071010
  Serious: Yes (Hospitalization)
  Sender: FDA-Public Use
  Company Number: US-JNJFOC-20070300877

PATIENT
  Sex: Female
  Weight: 70.76 kg

DRUGS (5)
  1. DURAGESIC-100 [Suspect]
     Route: 062
  2. DURAGESIC-100 [Suspect]
     Indication: PAIN
     Route: 062
  3. DILTIAZEM [Suspect]
     Indication: ATRIAL FIBRILLATION
     Route: 048
  4. VASOTEC [Concomitant]
     Indication: BLOOD PRESSURE
     Route: 048
  5. NEXIUM [Concomitant]
     Indication: GASTROINTESTINAL DISORDER
     Route: 048

REACTIONS (5)
  - ATRIAL FIBRILLATION [None]
  - CONSTIPATION [None]
  - DRUG INEFFECTIVE [None]
  - HYPOTENSION [None]
  - NAUSEA [None]
